FAERS Safety Report 18166794 (Version 1)
Quarter: 2020Q3

REPORT INFORMATION
  Report Type: Report from Study
  Country: None (occurrence: TN)
  Receive Date: 20200819
  Receipt Date: 20200819
  Transmission Date: 20201103
  Serious: Yes (Hospitalization)
  Sender: FDA-Public Use
  Company Number: TN-ABBVIE-20K-160-3421117-00

PATIENT
  Age: 26 Year
  Sex: Male

DRUGS (5)
  1. FORTADOL [Concomitant]
     Indication: PAIN
     Route: 048
     Dates: start: 202005
  2. SALAZOPYRINE [Concomitant]
     Active Substance: SULFASALAZINE
     Indication: ANKYLOSING SPONDYLITIS
     Route: 048
     Dates: start: 2004, end: 202001
  3. HUMIRA [Suspect]
     Active Substance: ADALIMUMAB
     Indication: ANKYLOSING SPONDYLITIS
     Route: 058
     Dates: start: 20180525, end: 202001
  4. ADOL [Concomitant]
     Indication: PAIN
     Route: 048
     Dates: start: 2014
  5. INDOCID [INDOMETACIN SODIUM] [Concomitant]
     Active Substance: INDOMETHACIN SODIUM
     Indication: INFLAMMATION
     Dosage: 6 TABLETS PER DAY
     Route: 046
     Dates: start: 202005

REACTIONS (4)
  - Mobility decreased [Not Recovered/Not Resolved]
  - Drug ineffective [Not Recovered/Not Resolved]
  - Red blood cell sedimentation rate abnormal [Recovering/Resolving]
  - Arthralgia [Not Recovered/Not Resolved]

NARRATIVE: CASE EVENT DATE: 201910
